FAERS Safety Report 15565389 (Version 2)
Quarter: 2018Q4

REPORT INFORMATION
  Report Type: Spontaneous
  Country: US (occurrence: US)
  Receive Date: 20181030
  Receipt Date: 20181117
  Transmission Date: 20190205
  Serious: No
  Sender: FDA-Public Use
  Company Number: US-JNJFOC-20181003050

PATIENT
  Sex: Female
  Weight: 61.24 kg

DRUGS (3)
  1. SINGULAIR [Concomitant]
     Active Substance: MONTELUKAST SODIUM
     Indication: CYSTITIS INTERSTITIAL
     Route: 065
  2. ELMIRON [Suspect]
     Active Substance: PENTOSAN POLYSULFATE SODIUM
     Indication: PRODUCT USED FOR UNKNOWN INDICATION
     Route: 048
     Dates: start: 2005
  3. TAGAMET [Concomitant]
     Active Substance: CIMETIDINE
     Indication: CYSTITIS INTERSTITIAL
     Route: 065

REACTIONS (1)
  - Underdose [Unknown]
